FAERS Safety Report 7157693-8 (Version None)
Quarter: 2010Q4

REPORT INFORMATION
  Report Type: 
  Country: None (occurrence: None)
  Receive Date: 20101214
  Receipt Date: 20100223
  Transmission Date: 20110411
  Serious: Yes (Hospitalization)
  Sender: FDA-Public Use
  Company Number: US-ASTRAZENECA-2010SE11645

PATIENT
  Age: 57 Year
  Sex: Female

DRUGS (7)
  1. CRESTOR [Suspect]
     Route: 048
  2. BENICAR [Suspect]
     Route: 065
  3. AMARYL [Suspect]
     Route: 065
  4. METFORMIN [Concomitant]
  5. VIT.D [Concomitant]
     Dosage: 2000 UNITS DAILY
  6. CALTRATE D [Concomitant]
     Dosage: TWICE DAILY
  7. ASPIRIN [Concomitant]
     Dosage: ONE DAILY

REACTIONS (1)
  - MYOPATHY [None]
